FAERS Safety Report 8533376-4 (Version None)
Quarter: 2012Q3

REPORT INFORMATION
  Report Type: 
  Country: None (occurrence: None)
  Receive Date: 20120724
  Receipt Date: 20120716
  Transmission Date: 20120928
  Serious: Yes (Other)
  Sender: FDA-Public Use
  Company Number: PHHY2012CA029372

PATIENT
  Sex: Male

DRUGS (4)
  1. VITAMIN B-12 [Concomitant]
     Dosage: UNK
  2. CALCIUM [Concomitant]
     Dosage: EVERY DAY
  3. EXELON [Suspect]
     Indication: DEMENTIA ALZHEIMER'S TYPE
     Dosage: 4.6 MG, QD
     Route: 062
     Dates: start: 20120327
  4. MICARDIS [Concomitant]
     Dosage: EVERY MORNING

REACTIONS (7)
  - APPLICATION SITE OEDEMA [None]
  - APPLICATION SITE ERYTHEMA [None]
  - APHASIA [None]
  - INCORRECT ROUTE OF DRUG ADMINISTRATION [None]
  - CONFUSIONAL STATE [None]
  - VOMITING [None]
  - APPLICATION SITE PRURITUS [None]
